FAERS Safety Report 19528098 (Version 1)
Quarter: 2021Q3

REPORT INFORMATION
  Report Type: Spontaneous
  Country: US (occurrence: US)
  Receive Date: 20210713
  Receipt Date: 20210713
  Transmission Date: 20211014
  Serious: Yes (Other)
  Sender: FDA-Public Use
  Company Number: US-AUROBINDO-AUR-APL-2019-076726

PATIENT
  Age: 31 Year
  Sex: Male

DRUGS (2)
  1. DIAMORPHINE [Suspect]
     Active Substance: DIAMORPHINE
     Indication: PRODUCT USED FOR UNKNOWN INDICATION
     Dosage: UNK
     Route: 065
  2. ALPRAZOLAM. [Suspect]
     Active Substance: ALPRAZOLAM
     Indication: PRODUCT USED FOR UNKNOWN INDICATION
     Dosage: UNK
     Route: 065

REACTIONS (10)
  - Hypotension [Unknown]
  - Toxicity to various agents [Unknown]
  - Mental status changes [Unknown]
  - Tachycardia [Unknown]
  - Renal impairment [Unknown]
  - Drug abuse [Unknown]
  - Transaminases increased [Unknown]
  - Unresponsive to stimuli [Unknown]
  - Troponin increased [Unknown]
  - Deafness [Unknown]
